FAERS Safety Report 4994063-2 (Version None)
Quarter: 2006Q2

REPORT INFORMATION
  Report Type: 
  Country: None (occurrence: None)
  Receive Date: 20060505
  Receipt Date: 20060425
  Transmission Date: 20061013
  Serious: Yes (Other)
  Sender: FDA-Public Use
  Company Number: US-JNJFOC-20060105477

PATIENT
  Sex: Male
  Weight: 83.92 kg

DRUGS (6)
  1. REMINYL [Suspect]
     Route: 048
  2. ZETIA [Concomitant]
  3. ATENOLOL [Concomitant]
  4. LIPITOR [Concomitant]
  5. ASPIRIN [Concomitant]
     Indication: ANTICOAGULANT THERAPY
  6. KLONOPIN [Concomitant]

REACTIONS (22)
  - ABDOMINAL PAIN [None]
  - ABNORMAL DREAMS [None]
  - ASTHENIA [None]
  - CATARACT OPERATION [None]
  - DEPRESSION [None]
  - DIARRHOEA [None]
  - DIPLOPIA [None]
  - DIZZINESS [None]
  - DRY MOUTH [None]
  - EYE DISORDER [None]
  - FLATULENCE [None]
  - HEADACHE [None]
  - HYPERHIDROSIS [None]
  - LIMB INJURY [None]
  - MUSCLE DISORDER [None]
  - MUSCLE SPASMS [None]
  - MYALGIA [None]
  - SOMNOLENCE [None]
  - STOMACH DISCOMFORT [None]
  - TREMOR [None]
  - TRIPLE VESSEL BYPASS GRAFT [None]
  - URINARY INCONTINENCE [None]
